FAERS Safety Report 6433502-7 (Version None)
Quarter: 2009Q4

REPORT INFORMATION
  Report Type: 
  Country: None (occurrence: None)
  Receive Date: 20091106
  Receipt Date: 20091106
  Transmission Date: 20100525
  Serious: Yes (Hospitalization)
  Sender: FDA-Public Use
  Company Number: None

PATIENT
  Sex: Female
  Weight: 28.6 kg

DRUGS (4)
  1. REMICADE [Suspect]
     Indication: JUVENILE ARTHRITIS
     Dosage: 300 MG ONE TIME ONLY IV
     Route: 042
     Dates: start: 20090805, end: 20090805
  2. PREDNISONE [Concomitant]
  3. METHOTREXATE [Concomitant]
  4. LEUCOVORIN CALCIUM [Concomitant]

REACTIONS (6)
  - EYE SWELLING [None]
  - INFUSION RELATED REACTION [None]
  - JOINT SWELLING [None]
  - LIP SWELLING [None]
  - OROPHARYNGEAL PAIN [None]
  - PRURITUS [None]
